FAERS Safety Report 7903777-3 (Version None)
Quarter: 2011Q4

REPORT INFORMATION
  Report Type: 
  Country: None (occurrence: None)
  Receive Date: 20111109
  Receipt Date: 20111103
  Transmission Date: 20120403
  Serious: Yes (Hospitalization)
  Sender: FDA-Public Use
  Company Number: AT-ROCHE-1009357

PATIENT
  Age: 52 Year
  Sex: Male

DRUGS (6)
  1. FORTECORTIN [Concomitant]
  2. MIRTAZAPINE [Concomitant]
  3. AVASTIN [Suspect]
     Indication: MALIGNANT OLIGODENDROGLIOMA
     Route: 042
     Dates: start: 20101015, end: 20101112
  4. IRINOTECAN HCL [Suspect]
     Indication: MALIGNANT OLIGODENDROGLIOMA
     Route: 042
     Dates: start: 20101015, end: 20101112
  5. TRILEPTAL [Concomitant]
  6. QUETIAPINE FUMARATE [Concomitant]

REACTIONS (1)
  - HERPES OPHTHALMIC [None]
